FAERS Safety Report 9590852 (Version 1)
Quarter: 2013Q4

REPORT INFORMATION
  Report Type: Spontaneous
  Country: US (occurrence: US)
  Receive Date: 20131003
  Receipt Date: 20131003
  Transmission Date: 20140711
  Serious: No
  Sender: FDA-Public Use
  Company Number: US-AMGEN-USASP2012075467

PATIENT
  Age: 54 Year
  Sex: Male

DRUGS (1)
  1. ENBREL [Suspect]
     Indication: PSORIATIC ARTHROPATHY
     Dosage: 50 MG, QWK
     Dates: start: 20120820, end: 201210

REACTIONS (6)
  - Staphylococcal infection [Recovered/Resolved]
  - Cellulitis [Recovered/Resolved]
  - Fungal infection [Not Recovered/Not Resolved]
  - Psoriasis [Not Recovered/Not Resolved]
  - Oral infection [Not Recovered/Not Resolved]
  - Dysgeusia [Not Recovered/Not Resolved]
